FAERS Safety Report 16182778 (Version 2)
Quarter: 2019Q2

REPORT INFORMATION
  Report Type: Spontaneous
  Country: US (occurrence: US)
  Receive Date: 20190411
  Receipt Date: 20190502
  Transmission Date: 20190711
  Serious: No
  Sender: FDA-Public Use
  Company Number: US-009507513-1904USA004276

PATIENT
  Sex: Female

DRUGS (3)
  1. ASMANEX [Suspect]
     Active Substance: MOMETASONE FUROATE
     Dosage: ONE PUFF/ ONCE A DAY
     Route: 055
     Dates: start: 20181218
  2. ASMANEX [Suspect]
     Active Substance: MOMETASONE FUROATE
     Dosage: UNK
  3. ASMANEX [Suspect]
     Active Substance: MOMETASONE FUROATE
     Dosage: ONE PUFF/ ONCE A DAY
     Route: 055
     Dates: start: 20190325

REACTIONS (4)
  - Poor quality device used [Unknown]
  - No adverse event [Unknown]
  - Product quality issue [Unknown]
  - Product lot number issue [Unknown]

NARRATIVE: CASE EVENT DATE: 20190325
